FAERS Safety Report 10164418 (Version 2)
Quarter: 2014Q2

REPORT INFORMATION
  Report Type: Spontaneous
  Country: US (occurrence: US)
  Receive Date: 20140510
  Receipt Date: 20140510
  Transmission Date: 20141212
  Serious: No
  Sender: FDA-Public Use
  Company Number: US200704006612

PATIENT
  Age: 65 Year
  Sex: Male
  Weight: 104.31 kg

DRUGS (9)
  1. BYETTA PEN DISPOSABLE [Suspect]
     Indication: TYPE 2 DIABETES MELLITUS
     Dosage: APR2015:EXP DATE
     Route: 058
     Dates: start: 2006
  2. BYETTA PEN DISPOSABLE [Suspect]
     Indication: TYPE 2 DIABETES MELLITUS
     Route: 058
     Dates: start: 2006, end: 2006
  3. EXENATIDE 10MCG PEN, DISPOSABLE DEVICE [Concomitant]
  4. ASA [Concomitant]
  5. METFORMIN [Concomitant]
  6. AMARYL [Concomitant]
  7. LANTUS [Concomitant]
  8. BABY ASPIRIN [Concomitant]
  9. LIPITOR [Concomitant]

REACTIONS (1)
  - Injection site bruising [Not Recovered/Not Resolved]
